FAERS Safety Report 4453659-7 (Version None)
Quarter: 2004Q3

REPORT INFORMATION
  Report Type: 
  Country: None (occurrence: None)
  Receive Date: 20040920
  Receipt Date: 20040909
  Transmission Date: 20050211
  Serious: Yes (Death, Hospitalization, Other)
  Sender: FDA-Public Use
  Company Number: JP-BRISTOL-MYERS SQUIBB COMPANY-12702668

PATIENT
  Age: 41 Year
  Sex: Female

DRUGS (23)
  1. ETOPOSIDE [Suspect]
     Indication: PERIPHERAL T-CELL LYMPHOMA UNSPECIFIED
     Dosage: MAINTENANCE CHEMOTHERAPY UNTIL 1995
     Dates: start: 19900101, end: 19911001
  2. ETOPOSIDE [Suspect]
     Indication: ACUTE MYELOID LEUKAEMIA
     Dosage: MAINTENANCE CHEMOTHERAPY UNTIL 1995
     Dates: start: 19900101, end: 19911001
  3. ENDOXAN [Suspect]
     Indication: PERIPHERAL T-CELL LYMPHOMA UNSPECIFIED
     Dates: start: 19900101, end: 19911001
  4. BLEOMYCIN SULFATE [Suspect]
     Indication: PERIPHERAL T-CELL LYMPHOMA UNSPECIFIED
     Dates: end: 19911001
  5. CISPLATIN [Suspect]
     Indication: PERIPHERAL T-CELL LYMPHOMA UNSPECIFIED
     Dates: end: 19911001
  6. CARBOPLATIN [Suspect]
     Indication: PERIPHERAL T-CELL LYMPHOMA UNSPECIFIED
     Dates: end: 19911001
  7. ADRIAMYCIN PFS [Suspect]
     Indication: PERIPHERAL T-CELL LYMPHOMA UNSPECIFIED
     Dates: start: 19900101
  8. VINCRISTINE [Suspect]
     Indication: PERIPHERAL T-CELL LYMPHOMA UNSPECIFIED
     Dosage: MAINTENANCE CHEMOTHERAPY UNTIL 1995
     Dates: start: 19900101
  9. VINCRISTINE [Suspect]
     Indication: ACUTE MYELOID LEUKAEMIA
     Dosage: MAINTENANCE CHEMOTHERAPY UNTIL 1995
     Dates: start: 19900101
  10. PREDNISOLONE [Suspect]
     Indication: PERIPHERAL T-CELL LYMPHOMA UNSPECIFIED
     Dates: start: 19900101
  11. MITOXANTRONE [Suspect]
     Indication: PERIPHERAL T-CELL LYMPHOMA UNSPECIFIED
     Dates: start: 19900101, end: 19910101
  12. VINDESINE [Suspect]
     Indication: PERIPHERAL T-CELL LYMPHOMA UNSPECIFIED
     Dosage: MAINTENANCE CHEMOTHERAPY UNTIL 1995
     Dates: end: 19950101
  13. VINDESINE [Suspect]
     Indication: ACUTE MYELOID LEUKAEMIA
     Dosage: MAINTENANCE CHEMOTHERAPY UNTIL 1995
     Dates: end: 19950101
  14. CYTARABINE [Suspect]
     Indication: PERIPHERAL T-CELL LYMPHOMA UNSPECIFIED
     Dosage: MAINTENANCE CHEMOTHERAPY UNTIL 1995
     Dates: end: 19911001
  15. CYTARABINE [Suspect]
     Indication: ACUTE MYELOID LEUKAEMIA
     Dosage: MAINTENANCE CHEMOTHERAPY UNTIL 1995
     Dates: end: 19911001
  16. ENOCITABINE [Suspect]
     Indication: PERIPHERAL T-CELL LYMPHOMA UNSPECIFIED
     Dosage: MAINTENANCE CHEMOTHERAPY UNTIL 1995
     Dates: end: 19911001
  17. ENOCITABINE [Suspect]
     Indication: ACUTE MYELOID LEUKAEMIA
     Dosage: MAINTENANCE CHEMOTHERAPY UNTIL 1995
     Dates: end: 19911001
  18. RANIMUSTINE [Suspect]
     Indication: PERIPHERAL T-CELL LYMPHOMA UNSPECIFIED
     Dosage: MAINTENANCE CHEMOTHERAPY UNTIL 1995
     Dates: end: 19911001
  19. RANIMUSTINE [Suspect]
     Indication: ACUTE MYELOID LEUKAEMIA
     Dosage: MAINTENANCE CHEMOTHERAPY UNTIL 1995
     Dates: end: 19911001
  20. PROCARBAZINE [Suspect]
     Indication: PERIPHERAL T-CELL LYMPHOMA UNSPECIFIED
     Dates: end: 19911001
  21. DAUNOMYCIN [Suspect]
     Indication: ACUTE MYELOID LEUKAEMIA
     Dates: start: 19920701, end: 19950101
  22. ACLARUBICIN [Suspect]
     Indication: ACUTE MYELOID LEUKAEMIA
     Dates: end: 19950101
  23. 6-MP [Suspect]
     Indication: ACUTE MYELOID LEUKAEMIA
     Dates: start: 19920701, end: 19950101

REACTIONS (4)
  - ACUTE MYELOID LEUKAEMIA [None]
  - CEREBRAL HAEMORRHAGE [None]
  - MYELODYSPLASTIC SYNDROME [None]
  - TREATMENT RELATED SECONDARY MALIGNANCY [None]
